FAERS Safety Report 10051513 (Version 3)
Quarter: 2014Q2

REPORT INFORMATION
  Report Type: Report from Study
  Country: TW (occurrence: TW)
  Receive Date: 20140401
  Receipt Date: 20140502
  Transmission Date: 20141212
  Serious: Yes (Hospitalization, Other)
  Sender: FDA-Public Use
  Company Number: TW-ABBVIE-14P-153-1216252-00

PATIENT
  Age: 55 Year
  Sex: Male
  Weight: 64 kg

DRUGS (2)
  1. HUMIRA [Suspect]
     Indication: PSORIASIS
     Route: 058
     Dates: start: 201208, end: 20140306
  2. HUMIRA [Suspect]
     Dates: start: 20140306

REACTIONS (9)
  - Haematemesis [Recovered/Resolved]
  - Gastric haemorrhage [Recovered/Resolved]
  - Oesophageal haemorrhage [Recovered/Resolved]
  - Hepatic cirrhosis [Unknown]
  - Pulmonary oedema [Recovered/Resolved]
  - Pleural effusion [Recovered/Resolved]
  - Cardiomegaly [Recovered/Resolved]
  - Rib fracture [Recovered/Resolved]
  - Electrocardiogram QT prolonged [Recovered/Resolved]
